FAERS Safety Report 6696425-4 (Version None)
Quarter: 2010Q2

REPORT INFORMATION
  Report Type: 
  Country: None (occurrence: None)
  Receive Date: 20100426
  Receipt Date: 20100413
  Transmission Date: 20101027
  Serious: Yes (Hospitalization)
  Sender: FDA-Public Use
  Company Number: CL-ROCHE-697459

PATIENT
  Age: 51 Year
  Sex: Male
  Weight: 60 kg

DRUGS (4)
  1. CAPECITABINE [Suspect]
     Indication: COLON CANCER
     Dosage: FREQUENCY: 2000 IN THE MORNING, 1500 IN THE AFTERNOON
     Route: 065
     Dates: start: 20100114
  2. KETOPROFEN [Concomitant]
  3. PARGEVERINE [Concomitant]
  4. METAMIZOL [Concomitant]
     Dosage: DRUG REPORTED AS METHAMIZOL

REACTIONS (3)
  - BLOOD GLUCOSE DECREASED [None]
  - HEPATOMEGALY [None]
  - IMMUNODEFICIENCY [None]
